FAERS Safety Report 5887765-7 (Version None)
Quarter: 2008Q3

REPORT INFORMATION
  Report Type: 
  Country: None (occurrence: None)
  Receive Date: 20080916
  Receipt Date: 20080904
  Transmission Date: 20090109
  Serious: Yes (Hospitalization)
  Sender: FDA-Public Use
  Company Number: JPI-C-004325

PATIENT
  Age: 47 Year
  Sex: Female
  Weight: 59.2398 kg

DRUGS (13)
  1. SODIUM OXYBATE (OXYBATE SODIUM) (500 MILLIGRAM/MILLILITERS, SOLUTION) [Suspect]
     Indication: FIBROMYALGIA
     Dosage: SEE IMAGE
     Route: 048
     Dates: start: 20080219, end: 20080227
  2. SODIUM OXYBATE (OXYBATE SODIUM) (500 MILLIGRAM/MILLILITERS, SOLUTION) [Suspect]
     Indication: FIBROMYALGIA
     Dosage: SEE IMAGE
     Route: 048
     Dates: start: 20080228, end: 20080303
  3. SODIUM OXYBATE (OXYBATE SODIUM) (500 MILLIGRAM/MILLILITERS, SOLUTION) [Suspect]
     Indication: FIBROMYALGIA
     Dosage: SEE IMAGE
     Route: 048
     Dates: start: 20080304, end: 20080514
  4. SODIUM OXYBATE (OXYBATE SODIUM) (500 MILLIGRAM/MILLILITERS, SOLUTION) [Suspect]
     Indication: FIBROMYALGIA
     Dosage: SEE IMAGE
     Route: 048
     Dates: start: 20080515, end: 20080522
  5. SODIUM OXYBATE (OXYBATE SODIUM) (500 MILLIGRAM/MILLILITERS, SOLUTION) [Suspect]
     Indication: FIBROMYALGIA
     Dosage: SEE IMAGE
     Route: 048
     Dates: start: 20080523, end: 20080713
  6. SODIUM OXYBATE (OXYBATE SODIUM) (500 MILLIGRAM/MILLILITERS, SOLUTION) [Suspect]
     Indication: FIBROMYALGIA
     Dosage: SEE IMAGE
     Route: 048
     Dates: start: 20080714, end: 20080806
  7. SODIUM OXYBATE (OXYBATE SODIUM) (500 MILLIGRAM/MILLILITERS, SOLUTION) [Suspect]
     Indication: FIBROMYALGIA
     Dosage: SEE IMAGE
     Route: 048
     Dates: start: 20080807, end: 20080807
  8. SODIUM OXYBATE (OXYBATE SODIUM) (500 MILLIGRAM/MILLILITERS, SOLUTION) [Suspect]
     Indication: FIBROMYALGIA
     Dosage: SEE IMAGE
     Route: 048
     Dates: start: 20080807, end: 20080807
  9. SODIUM OXYBATE (OXYBATE SODIUM) (500 MILLIGRAM/MILLILITERS, SOLUTION) [Suspect]
     Indication: FIBROMYALGIA
     Dosage: SEE IMAGE
     Route: 048
     Dates: start: 20080801
  10. BIMATOPROST (BIMATOPROST) [Concomitant]
  11. ACETAMINOPHEN [Concomitant]
  12. IBUPROFEN [Concomitant]
  13. NAPROXEN [Concomitant]

REACTIONS (17)
  - ACCIDENTAL OVERDOSE [None]
  - ATELECTASIS [None]
  - BLOOD ALCOHOL INCREASED [None]
  - BLOOD PRESSURE INCREASED [None]
  - BLOOD UREA INCREASED [None]
  - BRAIN NATRIURETIC PEPTIDE INCREASED [None]
  - DIARRHOEA [None]
  - FAECAL INCONTINENCE [None]
  - HAEMOGLOBIN DECREASED [None]
  - INCORRECT DOSE ADMINISTERED [None]
  - LEFT VENTRICULAR HYPERTROPHY [None]
  - MITRAL VALVE INCOMPETENCE [None]
  - RESPIRATORY DISTRESS [None]
  - TOXIC ENCEPHALOPATHY [None]
  - TRICUSPID VALVE INCOMPETENCE [None]
  - URINARY INCONTINENCE [None]
  - URINARY TRACT INFECTION [None]
